FAERS Safety Report 8513071-8 (Version None)
Quarter: 2012Q3

REPORT INFORMATION
  Report Type: 
  Country: None (occurrence: None)
  Receive Date: 20120716
  Receipt Date: 20120703
  Transmission Date: 20120928
  Serious: Yes (Hospitalization, Other)
  Sender: FDA-Public Use
  Company Number: US-PURDUE-USA-2012-0089835

PATIENT
  Age: 49 Year
  Sex: Male

DRUGS (8)
  1. OXYCONTIN [Suspect]
     Indication: BACK PAIN
     Dosage: 160 MG, TID
     Route: 048
     Dates: start: 20100630
  2. DILAUDID-HP [Suspect]
     Indication: BACK PAIN
     Dosage: 1 MG, PRN
     Route: 042
  3. DILAUDID-HP [Suspect]
     Dosage: 0.4 MG/HR, UNK
     Route: 042
  4. OXYCODONE HCL [Suspect]
     Indication: BACK PAIN
     Dosage: 20 MG, Q4H
     Route: 048
  5. OXYCONTIN [Suspect]
     Dosage: 80 MG, SEE TEXT
     Route: 048
     Dates: start: 20100701
  6. OXYCONTIN [Suspect]
     Dosage: 60 MG, SEE TEXT
     Dates: start: 20100701
  7. OXYCODONE HCL [Suspect]
     Dosage: 30 MG, Q4H
     Route: 048
  8. LYRICA [Suspect]
     Indication: PRODUCT USED FOR UNKNOWN INDICATION
     Dosage: 150 MG, SEE TEXT
     Dates: start: 20100701

REACTIONS (8)
  - BACK PAIN [None]
  - PAIN [None]
  - ABSCESS [None]
  - INTERVERTEBRAL DISC DEGENERATION [None]
  - BURNING SENSATION [None]
  - DRUG TOLERANCE [None]
  - MUSCLE SPASMS [None]
  - GAIT DISTURBANCE [None]
